FAERS Safety Report 9753894 (Version 2)
Quarter: 2013Q4

REPORT INFORMATION
  Report Type: Spontaneous
  Country: US (occurrence: US)
  Receive Date: 20131213
  Receipt Date: 20131213
  Transmission Date: 20140711
  Serious: No
  Sender: FDA-Public Use
  Company Number: US-GILEAD-2010-0027423

PATIENT
  Sex: Female

DRUGS (4)
  1. LETAIRIS [Suspect]
     Indication: PULMONARY ARTERIAL HYPERTENSION
     Route: 048
     Dates: start: 20091116, end: 20100113
  2. COUMADIN [Concomitant]
  3. REVATIO [Concomitant]
  4. ENALAPRIL [Concomitant]

REACTIONS (5)
  - Fatigue [Unknown]
  - Pain in extremity [Unknown]
  - Exercise tolerance decreased [Unknown]
  - Heart disease congenital [Unknown]
  - No therapeutic response [Unknown]
